FAERS Safety Report 7523059 (Version 4)
Quarter: 2013Q4

REPORT INFORMATION
  Report Type: Report from Study
  Country: US (occurrence: AU)
  Receive Date: 20100803
  Receipt Date: 20131004
  Transmission Date: 20140711
  Serious: Yes (Hospitalization)
  Sender: FDA-Public Use
  Company Number: AU-PFIZER INC-2010096310

PATIENT
  Age: 68 Year
  Sex: Female
  Weight: 105 kg

DRUGS (15)
  1. TOFACITINIB CITRATE [Suspect]
     Indication: RHEUMATOID ARTHRITIS
     Dosage: 10 MG, 2X/DAY
     Route: 048
     Dates: start: 20091112, end: 20100716
  2. SALAZOPYRIN [Concomitant]
     Indication: RHEUMATOID ARTHRITIS
     Dosage: 1 G, 2X/DAY
     Route: 048
     Dates: start: 20090730
  3. CRESTOR [Concomitant]
     Indication: BLOOD CHOLESTEROL
     Dosage: 10 MG, 1X/DAY
     Route: 048
     Dates: start: 1985
  4. MOBIC [Concomitant]
     Indication: RHEUMATOID ARTHRITIS
     Dosage: 15 MG, 1X/DAY
     Route: 048
     Dates: start: 2000
  5. GLIMEPIRIDE [Concomitant]
     Indication: TYPE 2 DIABETES MELLITUS
     Dosage: 2 MG, 1X/DAY
     Route: 048
     Dates: start: 2007
  6. ZANIDIP [Concomitant]
     Indication: HYPERTENSION
     Dosage: 10 MG, 1X/DAY
     Route: 048
     Dates: start: 2004, end: 20091205
  7. MICARDIS HCT [Concomitant]
     Indication: HYPERTENSION
     Dosage: 80/12.5 MG, 1X/DAY
     Route: 048
     Dates: start: 2004
  8. PANADEINE FORTE [Concomitant]
     Indication: RHEUMATOID ARTHRITIS
     Dosage: UNK
     Route: 048
     Dates: start: 1995
  9. PARACETAMOL [Concomitant]
     Indication: RHEUMATOID ARTHRITIS
     Dosage: UNK
     Route: 048
     Dates: start: 1995
  10. PHENERGAN ^AVENTIS PHARMA^ [Concomitant]
     Indication: RHINITIS ALLERGIC
     Dosage: UNK, AS NEEDED
     Route: 048
     Dates: start: 1961
  11. FOLIC ACID [Concomitant]
     Indication: VITAMIN SUPPLEMENTATION
     Dosage: UNK, 2X/DAY
     Route: 048
     Dates: start: 20090219, end: 20091112
  12. EPSOM SALT [Concomitant]
     Indication: CONSTIPATION
     Dosage: 5 ML, AS NEEDED
     Route: 048
     Dates: start: 1987
  13. CEFACLOR [Concomitant]
     Indication: UPPER RESPIRATORY TRACT INFECTION
     Dosage: 375 MG, 2X/DAY
     Route: 048
     Dates: start: 20100210, end: 20100215
  14. CEFACLOR [Concomitant]
     Dosage: 375 MG, 2X/DAY
     Route: 048
     Dates: start: 20100628, end: 20100704
  15. SYSTANE [Concomitant]
     Indication: DRY EYE
     Dosage: 2 GTT, 4X/DAY
     Route: 047
     Dates: start: 20100210

REACTIONS (1)
  - Pneumonia cryptococcal [Recovering/Resolving]
